APPROVED DRUG PRODUCT: AMINOCAPROIC ACID
Active Ingredient: AMINOCAPROIC ACID
Strength: 500MG
Dosage Form/Route: TABLET;ORAL
Application: A213928 | Product #001 | TE Code: AB
Applicant: PHARMOBEDIENT CONSULTING LLC
Approved: Feb 12, 2021 | RLD: No | RS: No | Type: RX